FAERS Safety Report 17921272 (Version 2)
Quarter: 2020Q3

REPORT INFORMATION
  Report Type: Spontaneous
  Country: DE (occurrence: DE)
  Receive Date: 20200622
  Receipt Date: 20200929
  Transmission Date: 20201103
  Serious: Yes (Hospitalization)
  Sender: FDA-Public Use
  Company Number: DE-TEVA-2020-DE-1788884

PATIENT
  Age: 63 Year
  Sex: Male
  Weight: 124 kg

DRUGS (7)
  1. LEVOTHYROXIN?NATRIUM [Concomitant]
     Active Substance: LEVOTHYROXINE SODIUM
     Dosage: 150 MICROGRAM DAILY; 1?0?0?0
  2. IPILIMUMAB [Suspect]
     Active Substance: IPILIMUMAB
     Dosage: LAST IN NOVEMBER 2019? IPILIMUMAB
     Route: 065
  3. NIVOLUMAB [Suspect]
     Active Substance: NIVOLUMAB
     Dosage: LAST IN NOVEMBER 2019
     Route: 065
  4. OLMESARTAN [Concomitant]
     Active Substance: OLMESARTAN
     Dosage: 20 MILLIGRAM DAILY; 1?0?0?0
  5. DUTASTERID [Concomitant]
     Dosage: .5 MILLIGRAM DAILY; 0?0?1?0
  6. PREDNISOLON [Suspect]
     Active Substance: PREDNISOLONE
     Dosage: 20 MILLIGRAM DAILY; 0?1?0?0, NOT TAKEN THE DAY BEFORE (JANUARY 12TH, 2020)
     Route: 065
  7. TORASEMID [Concomitant]
     Active Substance: TORSEMIDE
     Dosage: 5 MILLIGRAM DAILY; 1?0?0?0, SINCE LAST THURSDAY (JANUARY 9TH, 2020)
     Dates: start: 20200109

REACTIONS (4)
  - Dyspnoea [Recovering/Resolving]
  - Oedema [Recovering/Resolving]
  - General physical health deterioration [Recovering/Resolving]
  - Chills [Recovering/Resolving]
